FAERS Safety Report 15312240 (Version 1)
Quarter: 2018Q3

REPORT INFORMATION
  Report Type: Report from Study
  Country: CA (occurrence: CA)
  Receive Date: 20180823
  Receipt Date: 20180823
  Transmission Date: 20181010
  Serious: Yes (Hospitalization)
  Sender: FDA-Public Use
  Company Number: CA-HLSUS-2018-CA-001126

PATIENT
  Age: 53 Year
  Sex: Female

DRUGS (1)
  1. CLOZARIL [Suspect]
     Active Substance: CLOZAPINE
     Route: 048
     Dates: start: 20080326

REACTIONS (4)
  - Rhabdomyolysis [Unknown]
  - Tachycardia [Unknown]
  - Pyrexia [Not Recovered/Not Resolved]
  - Heat stroke [None]

NARRATIVE: CASE EVENT DATE: 201807
